FAERS Safety Report 7221791-0 (Version None)
Quarter: 2011Q1

REPORT INFORMATION
  Report Type: 
  Country: None (occurrence: None)
  Receive Date: 20110112
  Receipt Date: 20110107
  Transmission Date: 20110831
  Serious: Yes (Other)
  Sender: FDA-Public Use
  Company Number: US-KINGPHARMUSA00001-K201100028

PATIENT
  Age: 40 Year
  Sex: Female
  Weight: 90.703 kg

DRUGS (6)
  1. CYTOMEL [Suspect]
     Indication: THYROID THERAPY
     Dosage: UNK
     Route: 048
  2. GEODON [Suspect]
     Dosage: 40 MG, QD
     Route: 048
  3. LITHIUM CARBONATE [Concomitant]
     Indication: AFFECT LABILITY
     Dosage: 600 MG, QD
  4. GEODON [Suspect]
     Dosage: 20 MG, UNK
  5. GEODON [Suspect]
     Indication: BIPOLAR I DISORDER
     Dosage: 80 MG, UNK
     Dates: start: 20010101
  6. TRAZODONE HCL [Concomitant]
     Indication: SLEEP DISORDER
     Dosage: 50 MG, UNK

REACTIONS (2)
  - OROPHARYNGEAL PAIN [None]
  - GOITRE [None]
